FAERS Safety Report 14782416 (Version 1)
Quarter: 2018Q2

REPORT INFORMATION
  Report Type: Spontaneous
  Country: US (occurrence: US)
  Receive Date: 20180412
  Receipt Date: 20180412
  Transmission Date: 20180711
  Serious: Yes (Other)
  Sender: FDA-Public Use
  Company Number: None

PATIENT
  Sex: Male

DRUGS (1)
  1. CAPECITABINE 500MG WEST-WARD [Suspect]
     Active Substance: CAPECITABINE
     Indication: RECTAL CANCER
     Dosage: 1000 MG BIDFOR DAYS 1-7 OF 14 DAY CYCLE   PO                    ??NOT SPECIFIED
     Route: 048
     Dates: start: 20171230

REACTIONS (1)
  - Rash [None]
